FAERS Safety Report 4526120-9 (Version None)
Quarter: 2004Q4

REPORT INFORMATION
  Report Type: 
  Country: None (occurrence: None)
  Receive Date: 20041213
  Receipt Date: 20041213
  Transmission Date: 20050328
  Serious: Yes (Life-Threatening)
  Sender: FDA-Public Use
  Company Number: None

PATIENT
  Sex: Female
  Weight: 81.6475 kg

DRUGS (4)
  1. MUCINEX [Suspect]
     Indication: HYPERSENSITIVITY
     Dosage: 600MG  TWICE DAY  ORAL
     Route: 048
     Dates: start: 20040806, end: 20040826
  2. MUCINEX [Suspect]
     Indication: MUCOUS MEMBRANE DISORDER
     Dosage: 600MG  TWICE DAY  ORAL
     Route: 048
     Dates: start: 20040806, end: 20040826
  3. MUCINEX [Suspect]
     Indication: HYPERSENSITIVITY
     Dosage: 600MG  TWICE DAY  ORAL
     Route: 048
     Dates: start: 20040806, end: 20040826
  4. MUCINEX [Suspect]
     Indication: MUCOUS MEMBRANE DISORDER
     Dosage: 600MG  TWICE DAY  ORAL
     Route: 048
     Dates: start: 20040806, end: 20040826

REACTIONS (6)
  - ABDOMINAL PAIN [None]
  - DIARRHOEA [None]
  - DYSPHAGIA [None]
  - HEADACHE [None]
  - LIP BLISTER [None]
  - PHARMACEUTICAL PRODUCT COMPLAINT [None]
